FAERS Safety Report 8520983-8 (Version None)
Quarter: 2012Q3

REPORT INFORMATION
  Report Type: 
  Country: None (occurrence: None)
  Receive Date: 20120719
  Receipt Date: 20120711
  Transmission Date: 20120928
  Serious: Yes (Other)
  Sender: FDA-Public Use
  Company Number: JP-ASTRAZENECA-2012SE33919

PATIENT
  Age: 87 Year
  Sex: Male
  Weight: 52 kg

DRUGS (4)
  1. ROCEPHIN [Suspect]
     Route: 041
     Dates: start: 20120320, end: 20120320
  2. TPN ELECTROLYTES IN PLASTIC CONTAINER [Suspect]
     Route: 041
     Dates: start: 20120402, end: 20120405
  3. OMEPRAZOLE [Suspect]
     Route: 048
     Dates: start: 20120402, end: 20120405
  4. FLOMAX [Suspect]
     Route: 048
     Dates: start: 20120320, end: 20120322

REACTIONS (1)
  - DRUG-INDUCED LIVER INJURY [None]
